FAERS Safety Report 4640272-1 (Version None)
Quarter: 2005Q2

REPORT INFORMATION
  Report Type: 
  Country: None (occurrence: None)
  Receive Date: 20050420
  Receipt Date: 20050415
  Transmission Date: 20051028
  Serious: Yes (Hospitalization)
  Sender: FDA-Public Use
  Company Number: PS0500306

PATIENT
  Age: 42 Year
  Sex: Male

DRUGS (4)
  1. TRIZIVIR [Suspect]
     Indication: HIV INFECTION
     Dosage: 2TAB PER DAY
     Dates: start: 20020214, end: 20040422
  2. ZIDOVUDINE [Suspect]
     Indication: HIV INFECTION
     Dates: start: 20000201, end: 20020214
  3. LAMIVUDINE [Suspect]
     Indication: HIV INFECTION
     Dates: start: 20000201, end: 20040214
  4. ABACAVIR [Suspect]
     Indication: HIV INFECTION
     Dates: start: 20000201, end: 20040214

REACTIONS (1)
  - SYSTEMIC LUPUS ERYTHEMATOSUS [None]
